FAERS Safety Report 10615374 (Version 2)
Quarter: 2015Q1

REPORT INFORMATION
  Report Type: Spontaneous
  Country: JP (occurrence: JP)
  Receive Date: 20141201
  Receipt Date: 20150206
  Transmission Date: 20150720
  Serious: Yes (Other)
  Sender: FDA-Public Use
  Company Number: JP-ELI_LILLY_AND_COMPANY-JP201411008545

PATIENT
  Age: 65 Year
  Sex: Male

DRUGS (1)
  1. GEMZAR [Suspect]
     Active Substance: GEMCITABINE HYDROCHLORIDE
     Indication: PANCREATIC CARCINOMA
     Route: 042

REACTIONS (5)
  - Platelet count decreased [Unknown]
  - Cerebral infarction [Unknown]
  - Trousseau^s syndrome [Unknown]
  - Cerebral artery occlusion [Unknown]
  - Atrial flutter [Unknown]
